FAERS Safety Report 8293483-0 (Version None)
Quarter: 2012Q2

REPORT INFORMATION
  Report Type: 
  Country: None (occurrence: None)
  Receive Date: 20120417
  Receipt Date: 20120404
  Transmission Date: 20120825
  Serious: Yes (Hospitalization)
  Sender: FDA-Public Use
  Company Number: JP-MYLANLABS-2012S1002340

PATIENT
  Age: 69 Year
  Sex: Male
  Weight: 58.6 kg

DRUGS (11)
  1. EPIRUBICIN [Suspect]
     Dates: start: 20120403
  2. EPIRUBICIN [Suspect]
     Route: 013
     Dates: start: 20120222, end: 20120222
  3. TSU-68 [Suspect]
     Route: 048
     Dates: start: 20120229, end: 20120306
  4. ZOLPIDEM [Concomitant]
     Indication: INSOMNIA
     Dates: start: 20120113
  5. EPIRUBICIN [Suspect]
     Indication: HEPATIC NEOPLASM MALIGNANT
     Route: 013
     Dates: start: 20120111, end: 20120111
  6. URSO /00465701/ [Concomitant]
     Indication: HEPATITIS C
     Route: 048
     Dates: start: 20060124
  7. TSU-68 [Suspect]
     Indication: HEPATIC NEOPLASM MALIGNANT
     Route: 048
     Dates: start: 20120124, end: 20120131
  8. OLMESARTAN MEDOXOMIL [Concomitant]
     Indication: HYPERTENSION
     Route: 048
     Dates: start: 20090216
  9. TSU-68 [Suspect]
     Route: 048
     Dates: start: 20120403
  10. VOLTAREN SUPPO [Concomitant]
     Indication: INSOMNIA
     Route: 048
     Dates: start: 20120113, end: 20120204
  11. LANSOPRAZOLE [Concomitant]
     Indication: GASTROOESOPHAGEAL REFLUX DISEASE
     Route: 048
     Dates: start: 20060228

REACTIONS (1)
  - LIVER ABSCESS [None]
